FAERS Safety Report 5486551-X (Version None)
Quarter: 2007Q4

REPORT INFORMATION
  Report Type: 
  Country: None (occurrence: None)
  Receive Date: 20071016
  Receipt Date: 20070827
  Transmission Date: 20080405
  Serious: Yes (Other)
  Sender: FDA-Public Use
  Company Number: US-PURDUE-USA_2007_0029036

PATIENT
  Sex: Male

DRUGS (2)
  1. OXYCONTIN [Suspect]
     Indication: BACK INJURY
     Dosage: UNK MG, TID
     Route: 048
     Dates: start: 20000531, end: 20010401
  2. LORCET [Concomitant]
     Indication: DRUG USE FOR UNKNOWN INDICATION
     Dosage: 10 MG, TID
     Route: 048

REACTIONS (3)
  - BIPOLAR I DISORDER [None]
  - DRUG DEPENDENCE [None]
  - SUICIDAL IDEATION [None]
